FAERS Safety Report 11437259 (Version 1)
Quarter: 2015Q3

REPORT INFORMATION
  Report Type: Spontaneous
  Country: None (occurrence: US)
  Receive Date: 20150821
  Receipt Date: 20150821
  Transmission Date: 20151125
  Serious: No
  Sender: FDA-Public Use
  Company Number: US-ELI_LILLY_AND_COMPANY-US200703005233

PATIENT
  Age: 30 Year
  Sex: Female

DRUGS (2)
  1. CYMBALTA [Suspect]
     Active Substance: DULOXETINE HYDROCHLORIDE
     Indication: PAIN
     Dosage: 30 MG, UNK
     Dates: start: 20070321, end: 20070322
  2. LORTAB [Concomitant]
     Active Substance: ACETAMINOPHEN\HYDROCODONE BITARTRATE

REACTIONS (10)
  - Diarrhoea [Recovered/Resolved]
  - Pain in extremity [Unknown]
  - Feeling jittery [Unknown]
  - Pain [Unknown]
  - Feeling abnormal [Unknown]
  - Sleep disorder [Unknown]
  - Thought blocking [Unknown]
  - Dizziness [Recovered/Resolved]
  - Dyspnoea [Recovering/Resolving]
  - Vomiting [Recovered/Resolved]

NARRATIVE: CASE EVENT DATE: 20070321
